FAERS Safety Report 5600552-X (Version None)
Quarter: 2008Q1

REPORT INFORMATION
  Report Type: 
  Country: None (occurrence: None)
  Receive Date: 20080123
  Receipt Date: 20080102
  Transmission Date: 20080703
  Serious: No
  Sender: FDA-Public Use
  Company Number: US-BOEHRINGER INGELHEIM PHARMACEUTICALS, INC.-2008-BP-00187BP

PATIENT
  Age: 60 Year
  Sex: Female

DRUGS (2)
  1. MICARDIS HCT [Suspect]
  2. DILTIAZEM HCL [Concomitant]

REACTIONS (1)
  - RASH [None]
